FAERS Safety Report 5804887-7 (Version None)
Quarter: 2008Q3

REPORT INFORMATION
  Report Type: 
  Country: None (occurrence: None)
  Receive Date: 20080707
  Receipt Date: 20080618
  Transmission Date: 20090109
  Serious: Yes (Hospitalization)
  Sender: FDA-Public Use
  Company Number: 2006BI006620

PATIENT
  Age: 59 Year
  Sex: Female
  Weight: 131.5431 kg

DRUGS (1)
  1. AVONEX [Suspect]
     Indication: MULTIPLE SCLEROSIS
     Dosage: 30 UG;QW;IM
     Route: 030
     Dates: start: 20010101

REACTIONS (11)
  - ANKLE FRACTURE [None]
  - CELLULITIS [None]
  - DEEP VEIN THROMBOSIS [None]
  - FALL [None]
  - GRAND MAL CONVULSION [None]
  - HAEMOGLOBIN DECREASED [None]
  - HAEMORRHAGE [None]
  - INJECTION SITE PRURITUS [None]
  - LIMB INJURY [None]
  - MENINGIOMA [None]
  - PHLEBITIS [None]
